FAERS Safety Report 12898296 (Version 2)
Quarter: 2016Q4

REPORT INFORMATION
  Report Type: Spontaneous
  Country: PT (occurrence: PT)
  Receive Date: 20161031
  Receipt Date: 20161109
  Transmission Date: 20170207
  Serious: Yes (Hospitalization, Other)
  Sender: FDA-Public Use
  Company Number: PT-ABBVIE-16P-130-1765042-00

PATIENT
  Age: 66 Year
  Sex: Female

DRUGS (5)
  1. EXVIERA [Suspect]
     Active Substance: DASABUVIR
     Route: 048
     Dates: start: 201610
  2. EXVIERA [Suspect]
     Active Substance: DASABUVIR
     Indication: HEPATITIS C
     Route: 048
     Dates: start: 2016, end: 201610
  3. VIEKIRAX [Suspect]
     Active Substance: OMBITASVIR\PARITAPREVIR\RITONAVIR
     Dosage: DAILY DOSE 25/150/100MG
     Route: 048
     Dates: start: 201610
  4. RIBAVIRIN. [Concomitant]
     Active Substance: RIBAVIRIN
     Indication: HEPATITIS C
     Route: 048
     Dates: start: 2016, end: 201610
  5. VIEKIRAX [Suspect]
     Active Substance: OMBITASVIR\PARITAPREVIR\RITONAVIR
     Indication: HEPATITIS C
     Dosage: DAILY DOSE 25/150/100MG
     Route: 048
     Dates: start: 2016, end: 201610

REACTIONS (6)
  - Malaise [Recovering/Resolving]
  - Cognitive disorder [Recovering/Resolving]
  - Central nervous system lesion [Recovering/Resolving]
  - Blindness [Recovering/Resolving]
  - Ischaemic stroke [Recovering/Resolving]
  - Amaurosis [Recovering/Resolving]

NARRATIVE: CASE EVENT DATE: 201610
